FAERS Safety Report 7316156-7 (Version None)
Quarter: 2011Q1

REPORT INFORMATION
  Report Type: 
  Country: None (occurrence: None)
  Receive Date: 20110225
  Receipt Date: 20110221
  Transmission Date: 20110831
  Serious: Yes (Other)
  Sender: FDA-Public Use
  Company Number: BR-PFIZER INC-2011037458

PATIENT
  Age: 23 Year
  Sex: Female
  Weight: 76 kg

DRUGS (1)
  1. ADVIL EXTRA ALIVIO [Suspect]
     Indication: BACK PAIN
     Dosage: 1 DF, UNKNOWN FREQUENCY
     Route: 048
     Dates: end: 20110201

REACTIONS (9)
  - BLOOD PRESSURE DECREASED [None]
  - HEART RATE IRREGULAR [None]
  - CONVULSION [None]
  - SYNCOPE [None]
  - EYE SWELLING [None]
  - OEDEMA PERIPHERAL [None]
  - HYPERSENSITIVITY [None]
  - PRURITUS GENERALISED [None]
  - SWELLING [None]
